FAERS Safety Report 12807340 (Version 1)
Quarter: 2016Q4

REPORT INFORMATION
  Report Type: Spontaneous
  Country: US (occurrence: US)
  Receive Date: 20161003
  Receipt Date: 20161003
  Transmission Date: 20170207
  Serious: Yes (Hospitalization)
  Sender: FDA-Public Use
  Company Number: None

PATIENT
  Age: 83 Year
  Sex: Male
  Weight: 75.7 kg

DRUGS (1)
  1. LEVOFLOXACIN. [Suspect]
     Active Substance: LEVOFLOXACIN
     Dosage: MG PO
     Route: 048
     Dates: start: 20160605, end: 20160607

REACTIONS (3)
  - Thrombocytopenia [None]
  - Hyponatraemia [None]
  - Leukopenia [None]

NARRATIVE: CASE EVENT DATE: 20160607
